FAERS Safety Report 7448094-3 (Version None)
Quarter: 2011Q2

REPORT INFORMATION
  Report Type: 
  Country: None (occurrence: None)
  Receive Date: 20110429
  Receipt Date: 20100312
  Transmission Date: 20111010
  Serious: No
  Sender: FDA-Public Use
  Company Number: US-ASTRAZENECA-2007UW24277

PATIENT
  Age: 67 Year
  Sex: Male

DRUGS (6)
  1. NEXIUM [Suspect]
     Route: 048
     Dates: start: 20100301
  2. PILL FOR DIABETES [Concomitant]
  3. NEXIUM [Suspect]
     Indication: GASTROOESOPHAGEAL REFLUX DISEASE
     Route: 048
     Dates: start: 20100301
  4. VYTORIN [Concomitant]
  5. INSULIN [Concomitant]
  6. EYE DROPS [Concomitant]

REACTIONS (3)
  - FLATULENCE [None]
  - ABDOMINAL PAIN UPPER [None]
  - ILL-DEFINED DISORDER [None]
